FAERS Safety Report 14940701 (Version 2)
Quarter: 2018Q2

REPORT INFORMATION
  Report Type: Spontaneous
  Country: US (occurrence: US)
  Receive Date: 20180525
  Receipt Date: 20180607
  Transmission Date: 20180711
  Serious: No
  Sender: FDA-Public Use
  Company Number: US-ACTELION-A-NJ2018-171727

PATIENT
  Age: 70 Year
  Sex: Male

DRUGS (1)
  1. VALCHLOR [Suspect]
     Active Substance: MECHLORETHAMINE
     Indication: MYCOSIS FUNGOIDES
     Dosage: UNK
     Route: 061
     Dates: start: 20180416

REACTIONS (7)
  - Erythema [Unknown]
  - Skin weeping [Unknown]
  - Skin haemorrhage [Unknown]
  - Pain [Unknown]
  - Skin swelling [Unknown]
  - Dermatitis contact [Unknown]
  - Skin erosion [Unknown]
